FAERS Safety Report 9837548 (Version 1)
Quarter: 2014Q1

REPORT INFORMATION
  Report Type: Spontaneous
  Country: US (occurrence: None)
  Receive Date: 20140117
  Receipt Date: 20140117
  Transmission Date: 20141002
  Serious: Yes (Other)
  Sender: FDA-Public Use
  Company Number: None

PATIENT
  Age: 31 Year
  Sex: Female

DRUGS (1)
  1. LEXAPRO [Suspect]
     Dosage: 1 PILL  TAKEN BY MOUTH
     Route: 048

REACTIONS (4)
  - Anxiety [None]
  - Heart rate increased [None]
  - Panic attack [None]
  - Hyperventilation [None]
